FAERS Safety Report 19200134 (Version 5)
Quarter: 2025Q2

REPORT INFORMATION
  Report Type: Report from Study
  Country: US (occurrence: US)
  Receive Date: 20210430
  Receipt Date: 20250415
  Transmission Date: 20250716
  Serious: Yes (Other)
  Sender: TAKEDA
  Company Number: US-SHIRE-US202033011

PATIENT
  Age: 59 Year
  Sex: Female

DRUGS (2)
  1. HUMAN IMMUNOGLOBULIN G\HYALURONIDASE RECOMBINANT HUMAN [Suspect]
     Active Substance: HUMAN IMMUNOGLOBULIN G\HYALURONIDASE (HUMAN RECOMBINANT)
     Indication: Immunodeficiency common variable
     Dosage: 30 GRAM, Q4WEEKS
  2. HUMAN IMMUNOGLOBULIN G\HYALURONIDASE RECOMBINANT HUMAN [Suspect]
     Active Substance: HUMAN IMMUNOGLOBULIN G\HYALURONIDASE (HUMAN RECOMBINANT)
     Indication: Primary immunodeficiency syndrome

REACTIONS (16)
  - Intervertebral discitis [Unknown]
  - Sjogren^s syndrome [Unknown]
  - Glucocorticoid deficiency [Unknown]
  - Adrenal insufficiency [Unknown]
  - Diverticulitis [Recovering/Resolving]
  - Neuropathy peripheral [Unknown]
  - Hyperthyroidism [Recovering/Resolving]
  - Infusion site discomfort [Recovered/Resolved]
  - Infusion site swelling [Recovered/Resolved]
  - Vasculitis [Unknown]
  - Fall [Unknown]
  - Postural orthostatic tachycardia syndrome [Unknown]
  - Bronchitis chronic [Unknown]
  - Chronic obstructive pulmonary disease [Unknown]
  - Blood pressure increased [Unknown]
  - Fatigue [Not Recovered/Not Resolved]

NARRATIVE: CASE EVENT DATE: 20240521
